FAERS Safety Report 25896282 (Version 1)
Quarter: 2025Q4

REPORT INFORMATION
  Report Type: Spontaneous
  Country: EU (occurrence: EU)
  Receive Date: 20251008
  Receipt Date: 20251008
  Transmission Date: 20260119
  Serious: Yes (Other)
  Sender: MYLAN
  Company Number: None

PATIENT
  Age: 72 Year
  Sex: Female
  Weight: 85 kg

DRUGS (8)
  1. GALANTAMINE [Suspect]
     Active Substance: GALANTAMINE
     Indication: Dementia
     Dosage: 24 MILLIGRAM, QD (1X1 1X 24 MG)
     Dates: start: 20240702, end: 20250301
  2. GALANTAMINE [Suspect]
     Active Substance: GALANTAMINE
     Dosage: 24 MILLIGRAM, QD (1X1 1X 24 MG)
     Route: 048
     Dates: start: 20240702, end: 20250301
  3. GALANTAMINE [Suspect]
     Active Substance: GALANTAMINE
     Dosage: 24 MILLIGRAM, QD (1X1 1X 24 MG)
     Route: 048
     Dates: start: 20240702, end: 20250301
  4. GALANTAMINE [Suspect]
     Active Substance: GALANTAMINE
     Dosage: 24 MILLIGRAM, QD (1X1 1X 24 MG)
     Dates: start: 20240702, end: 20250301
  5. METHOTREXATE (METHOTREXATE SODIUM) [Concomitant]
     Active Substance: METHOTREXATE SODIUM
     Dosage: UNK UNK, QW (INJECTION 1 X PER WEEK)
  6. METHOTREXATE (METHOTREXATE SODIUM) [Concomitant]
     Active Substance: METHOTREXATE SODIUM
     Dosage: UNK UNK, QW (INJECTION 1 X PER WEEK)
     Route: 065
  7. METHOTREXATE (METHOTREXATE SODIUM) [Concomitant]
     Active Substance: METHOTREXATE SODIUM
     Dosage: UNK UNK, QW (INJECTION 1 X PER WEEK)
     Route: 065
  8. METHOTREXATE (METHOTREXATE SODIUM) [Concomitant]
     Active Substance: METHOTREXATE SODIUM
     Dosage: UNK UNK, QW (INJECTION 1 X PER WEEK)

REACTIONS (3)
  - Speech disorder [Recovered/Resolved]
  - Gait disturbance [Recovered/Resolved]
  - Depressed mood [Recovered/Resolved]
